FAERS Safety Report 10237030 (Version 1)
Quarter: 2014Q2

REPORT INFORMATION
  Report Type: Spontaneous
  Country: US (occurrence: US)
  Receive Date: 20140613
  Receipt Date: 20140613
  Transmission Date: 20141212
  Serious: Yes (Disabling)
  Sender: FDA-Public Use
  Company Number: US-BRISTOL-MYERS SQUIBB COMPANY-20950226

PATIENT
  Age: 88 Year
  Sex: Female

DRUGS (1)
  1. SUSTIVA [Suspect]
     Route: 048

REACTIONS (1)
  - Macular degeneration [Unknown]
